FAERS Safety Report 25987385 (Version 1)
Quarter: 2025Q4

REPORT INFORMATION
  Report Type: Spontaneous
  Country: IL (occurrence: IL)
  Receive Date: 20251103
  Receipt Date: 20251103
  Transmission Date: 20260117
  Serious: No
  Sender: ALKEM
  Company Number: IL-ALKEM LABORATORIES LIMITED-IL-ALKEM-2024-24394

PATIENT

DRUGS (1)
  1. IBUPROFEN [Suspect]
     Active Substance: IBUPROFEN
     Indication: Product used for unknown indication
     Dosage: 400 MILLIGRAM, QID (FOR THREE CONSECUTIVE DAYS)
     Route: 065

REACTIONS (1)
  - Diplopia [Unknown]
